FAERS Safety Report 15053454 (Version 1)
Quarter: 2018Q2

REPORT INFORMATION
  Report Type: Report from Study
  Country: US (occurrence: US)
  Receive Date: 20180622
  Receipt Date: 20180622
  Transmission Date: 20180711
  Serious: No
  Sender: FDA-Public Use
  Company Number: US-AMGEN-USASP2015083590

PATIENT
  Age: 20 Year
  Sex: Male

DRUGS (1)
  1. NPLATE [Suspect]
     Active Substance: ROMIPLOSTIM
     Indication: IMMUNE THROMBOCYTOPENIC PURPURA
     Dosage: UNK, UNK
     Route: 065
     Dates: start: 201402

REACTIONS (3)
  - Headache [Unknown]
  - Adverse drug reaction [Unknown]
  - Dizziness [Unknown]
